FAERS Safety Report 19938877 (Version 3)
Quarter: 2022Q3

REPORT INFORMATION
  Report Type: Spontaneous
  Country: JP (occurrence: JP)
  Receive Date: 20211011
  Receipt Date: 20220714
  Transmission Date: 20221027
  Serious: Yes (Hospitalization, Other)
  Sender: FDA-Public Use
  Company Number: JP-GLAXOSMITHKLINE-JP2021JPN207871

PATIENT

DRUGS (41)
  1. BENLYSTA [Suspect]
     Active Substance: BELIMUMAB
     Indication: Systemic lupus erythematosus
     Dosage: 10 MG/KG
     Route: 041
     Dates: start: 20180308, end: 20180402
  2. BENLYSTA [Suspect]
     Active Substance: BELIMUMAB
     Dosage: 10 MG/KG
     Route: 041
     Dates: start: 20180423, end: 20180514
  3. BENLYSTA [Suspect]
     Active Substance: BELIMUMAB
     Dosage: 10 MG/KG
     Route: 041
     Dates: start: 20180604, end: 20180730
  4. BENLYSTA [Suspect]
     Active Substance: BELIMUMAB
     Dosage: 10 MG/KG
     Route: 041
     Dates: start: 20180827, end: 20190304
  5. PREDNISOLONE [Suspect]
     Active Substance: PREDNISOLONE
     Indication: Systemic lupus erythematosus
     Dosage: 5 MG, 1D
     Dates: start: 20150629
  6. PREDONINE [Suspect]
     Active Substance: PREDNISOLONE
     Indication: Systemic lupus erythematosus
     Dosage: 5 MG, 1D
     Route: 048
     Dates: end: 20180909
  7. PREDONINE [Suspect]
     Active Substance: PREDNISOLONE
     Dosage: 20 MG, 1D
     Route: 048
     Dates: start: 20180910, end: 20180917
  8. PREDONINE [Suspect]
     Active Substance: PREDNISOLONE
     Dosage: 15 MG, 1D
     Route: 048
     Dates: start: 20180918, end: 20180924
  9. PREDONINE [Suspect]
     Active Substance: PREDNISOLONE
     Dosage: 12.5 MG, 1D
     Route: 048
     Dates: start: 20180925, end: 20181008
  10. PREDONINE [Suspect]
     Active Substance: PREDNISOLONE
     Dosage: 10 MG, 1D
     Route: 048
     Dates: start: 20181009, end: 20181029
  11. PREDONINE [Suspect]
     Active Substance: PREDNISOLONE
     Dosage: 9 MG, 1D
     Route: 048
     Dates: start: 20181030, end: 20181216
  12. PREDONINE [Suspect]
     Active Substance: PREDNISOLONE
     Dosage: 8 MG, 1D
     Route: 048
     Dates: start: 20181217, end: 20190203
  13. PREDONINE [Suspect]
     Active Substance: PREDNISOLONE
     Dosage: 7 MG, 1D
     Route: 048
     Dates: start: 20190204
  14. SOLU-CORTEF [Concomitant]
     Active Substance: HYDROCORTISONE SODIUM SUCCINATE
     Indication: Prophylaxis
     Dosage: 100 MG
     Dates: start: 20180308, end: 20180308
  15. SOLU-CORTEF [Concomitant]
     Active Substance: HYDROCORTISONE SODIUM SUCCINATE
     Dosage: 100 MG
     Dates: start: 20180320, end: 20180320
  16. SOLU-CORTEF [Concomitant]
     Active Substance: HYDROCORTISONE SODIUM SUCCINATE
     Dosage: 100 MG
     Dates: start: 20180402, end: 20180402
  17. SOLU-CORTEF [Concomitant]
     Active Substance: HYDROCORTISONE SODIUM SUCCINATE
     Dosage: 100 MG
     Dates: start: 20180423, end: 20180423
  18. SOLU-CORTEF [Concomitant]
     Active Substance: HYDROCORTISONE SODIUM SUCCINATE
     Dosage: 100 MG
     Dates: start: 20180514, end: 20180514
  19. SOLU-CORTEF [Concomitant]
     Active Substance: HYDROCORTISONE SODIUM SUCCINATE
     Dosage: 100 MG
     Dates: start: 20180604, end: 20180604
  20. SOLU-CORTEF [Concomitant]
     Active Substance: HYDROCORTISONE SODIUM SUCCINATE
     Dosage: 100 MG
     Dates: start: 20180702, end: 20180702
  21. SOLU-CORTEF [Concomitant]
     Active Substance: HYDROCORTISONE SODIUM SUCCINATE
     Dosage: 100 MG
     Dates: start: 20180730, end: 20180730
  22. TAKEPRON OD TABLETS [Concomitant]
     Indication: Gastritis prophylaxis
     Dosage: UNK
  23. CANDESARTAN CILEXETIL [Concomitant]
     Active Substance: CANDESARTAN CILEXETIL
     Dosage: UNK
  24. PLAQUENIL TABLETS (HYDROXYCHLOROQUINE SULFATE) [Concomitant]
     Indication: Systemic lupus erythematosus
     Dosage: UNK
  25. ADALAT-CR TABLET [Concomitant]
     Dosage: UNK
  26. ICOSAPENT ETHYL [Concomitant]
     Active Substance: ICOSAPENT ETHYL
     Dosage: UNK
  27. CELLCEPT [Concomitant]
     Active Substance: MYCOPHENOLATE MOFETIL
     Indication: Systemic lupus erythematosus
     Dosage: UNK
  28. LEVOCETIRIZINE DIHYDROCHLORIDE [Concomitant]
     Active Substance: LEVOCETIRIZINE DIHYDROCHLORIDE
     Indication: Prophylaxis
     Dosage: UNK
     Dates: start: 20180308, end: 20180308
  29. LEVOCETIRIZINE DIHYDROCHLORIDE [Concomitant]
     Active Substance: LEVOCETIRIZINE DIHYDROCHLORIDE
     Dosage: UNK
     Dates: start: 20180320, end: 20180320
  30. LEVOCETIRIZINE DIHYDROCHLORIDE [Concomitant]
     Active Substance: LEVOCETIRIZINE DIHYDROCHLORIDE
     Dosage: UNK
     Dates: start: 20180402, end: 20180402
  31. LEVOCETIRIZINE DIHYDROCHLORIDE [Concomitant]
     Active Substance: LEVOCETIRIZINE DIHYDROCHLORIDE
     Dosage: UNK
     Dates: start: 20180514, end: 20180514
  32. LEVOCETIRIZINE DIHYDROCHLORIDE [Concomitant]
     Active Substance: LEVOCETIRIZINE DIHYDROCHLORIDE
     Dosage: UNK
     Dates: start: 20180604, end: 20180604
  33. LEVOCETIRIZINE DIHYDROCHLORIDE [Concomitant]
     Active Substance: LEVOCETIRIZINE DIHYDROCHLORIDE
     Dosage: UNK
     Dates: start: 20180702, end: 20180702
  34. LEVOCETIRIZINE DIHYDROCHLORIDE [Concomitant]
     Active Substance: LEVOCETIRIZINE DIHYDROCHLORIDE
     Dosage: UNK
     Dates: start: 20180730, end: 20180730
  35. VOLTAREN SR CAPSULE [Concomitant]
     Indication: Systemic lupus erythematosus
     Dosage: UNK
  36. REBAMIPIDE OD TABLETS [Concomitant]
     Indication: Gastritis prophylaxis
     Dosage: UNK
  37. RISEDRONATE SODIUM [Concomitant]
     Active Substance: RISEDRONATE SODIUM
     Indication: Osteoporosis prophylaxis
     Dosage: UNK
  38. BUSCOPAN TABLETS [Concomitant]
     Indication: Systemic lupus erythematosus
     Dosage: UNK
  39. TRAMCET COMBINATION TABLETS [Concomitant]
     Dosage: UNK
  40. REBAMIPIDE [Concomitant]
     Active Substance: REBAMIPIDE
     Indication: Gastritis prophylaxis
     Dosage: UNK
  41. LOXOPROFEN SODIUM DIHYDRATE [Concomitant]
     Active Substance: LOXOPROFEN SODIUM DIHYDRATE
     Indication: Osteonecrosis
     Dosage: UNK

REACTIONS (2)
  - Acute myocardial infarction [Recovering/Resolving]
  - Angina pectoris [Recovering/Resolving]

NARRATIVE: CASE EVENT DATE: 20200929
